FAERS Safety Report 13377110 (Version 2)
Quarter: 2017Q1

REPORT INFORMATION
  Report Type: Spontaneous
  Country: US (occurrence: US)
  Receive Date: 20170328
  Receipt Date: 20170329
  Transmission Date: 20170429
  Serious: No
  Sender: FDA-Public Use
  Company Number: US-009507513-1703USA006222

PATIENT
  Sex: Male

DRUGS (1)
  1. MAXALT [Suspect]
     Active Substance: RIZATRIPTAN BENZOATE
     Dosage: UNK
     Route: 048
     Dates: start: 2010

REACTIONS (4)
  - Wrong technique in product usage process [Unknown]
  - Product blister packaging issue [Unknown]
  - No adverse event [Unknown]
  - Incorrect dose administered [Unknown]
